FAERS Safety Report 9936680 (Version 1)
Quarter: 2014Q1

REPORT INFORMATION
  Report Type: Spontaneous
  Country: US (occurrence: US)
  Receive Date: 20140228
  Receipt Date: 20140228
  Transmission Date: 20141002
  Serious: No
  Sender: FDA-Public Use
  Company Number: US-SANOFI-AVENTIS-2013SA093218

PATIENT
  Age: 39 Year
  Sex: Male

DRUGS (2)
  1. DIABETA [Suspect]
     Route: 065
  2. VICTOZA [Suspect]
     Route: 065

REACTIONS (5)
  - Disturbance in attention [Unknown]
  - Weight decreased [Unknown]
  - Dizziness [Unknown]
  - Tremor [Unknown]
  - Somnolence [Unknown]
